FAERS Safety Report 9565647 (Version 1)
Quarter: 2013Q3

REPORT INFORMATION
  Report Type: Spontaneous
  Country: US (occurrence: US)
  Receive Date: 20130930
  Receipt Date: 20130930
  Transmission Date: 20140515
  Serious: No
  Sender: FDA-Public Use
  Company Number: US-009507513-1309USA013172

PATIENT
  Sex: Male

DRUGS (4)
  1. JANUVIA [Suspect]
     Indication: TYPE 2 DIABETES MELLITUS
     Dosage: 100 MG, QD
     Route: 048
  2. JANUVIA [Suspect]
     Dosage: 100 MG, QD, JANUVIA RESTARTED
  3. MK-9378 [Concomitant]
     Dosage: UNK
  4. GLIPIZIDE [Concomitant]

REACTIONS (2)
  - Pharyngitis [Recovered/Resolved]
  - Pharyngitis [Recovered/Resolved]
